FAERS Safety Report 11518395 (Version 1)
Quarter: 2015Q3

REPORT INFORMATION
  Report Type: Report from Study
  Country: CA (occurrence: CA)
  Receive Date: 20150917
  Receipt Date: 20150917
  Transmission Date: 20151125
  Serious: Yes (Other)
  Sender: FDA-Public Use
  Company Number: CA-BAYER-2015-419379

PATIENT
  Age: 46 Year
  Sex: Female
  Weight: 71 kg

DRUGS (2)
  1. MIRENA [Suspect]
     Active Substance: LEVONORGESTREL
     Indication: MENORRHAGIA
     Dosage: 20 MCG/24HR, CONT
     Route: 015
     Dates: start: 2010, end: 20150901
  2. MIRENA [Suspect]
     Active Substance: LEVONORGESTREL
     Indication: MENOPAUSAL SYMPTOMS
     Dosage: 20 MCG/24HR, CONT
     Route: 015
     Dates: start: 20150901, end: 20150901

REACTIONS (8)
  - Tumour haemorrhage [Recovered/Resolved]
  - Procedural pain [None]
  - Device difficult to use [None]
  - Complication of device insertion [None]
  - Cervical polyp [None]
  - Device deployment issue [None]
  - Uterine cervix stenosis [None]
  - Off label use of device [None]

NARRATIVE: CASE EVENT DATE: 20150901
